FAERS Safety Report 13310694 (Version 1)
Quarter: 2017Q1

REPORT INFORMATION
  Report Type: Spontaneous
  Country: FR (occurrence: FR)
  Receive Date: 20170309
  Receipt Date: 20170309
  Transmission Date: 20170428
  Serious: Yes (Other)
  Sender: FDA-Public Use
  Company Number: PHHY2017FR034459

PATIENT
  Age: 72 Year
  Sex: Female

DRUGS (2)
  1. ZYKADIA [Suspect]
     Active Substance: CERITINIB
     Dosage: 2 DF, QD
     Route: 048
     Dates: start: 201611, end: 20161128
  2. ZYKADIA [Suspect]
     Active Substance: CERITINIB
     Indication: LUNG ADENOCARCINOMA
     Dosage: 4 DF, QD
     Route: 048
     Dates: start: 201609, end: 201610

REACTIONS (1)
  - Hepatitis [Recovering/Resolving]

NARRATIVE: CASE EVENT DATE: 20160928
